FAERS Safety Report 10223115 (Version 1)
Quarter: 2014Q2

REPORT INFORMATION
  Report Type: Spontaneous
  Country: GB (occurrence: GB)
  Receive Date: 20140607
  Receipt Date: 20140607
  Transmission Date: 20141212
  Serious: Yes (Other)
  Sender: FDA-Public Use
  Company Number: PHHY2014GB066412

PATIENT
  Age: 49 Year
  Sex: Female

DRUGS (2)
  1. METHOTREXATE [Suspect]
  2. INTERFERON BETA-1A [Suspect]
     Indication: RELAPSING-REMITTING MULTIPLE SCLEROSIS
     Dosage: 8 IU, UNK
     Route: 058

REACTIONS (3)
  - Influenza like illness [Unknown]
  - Injection site reaction [Unknown]
  - Drug interaction [Unknown]
